FAERS Safety Report 15889514 (Version 2)
Quarter: 2019Q1

REPORT INFORMATION
  Report Type: Spontaneous
  Country: US (occurrence: US)
  Receive Date: 20190130
  Receipt Date: 20190320
  Transmission Date: 20190417
  Serious: Yes (Hospitalization)
  Sender: FDA-Public Use
  Company Number: US-JNJFOC-20190134661

PATIENT
  Age: 74 Year
  Sex: Female

DRUGS (2)
  1. XARELTO [Suspect]
     Active Substance: RIVAROXABAN
     Indication: DEEP VEIN THROMBOSIS
     Route: 048
     Dates: start: 20140902, end: 20141203
  2. XARELTO [Suspect]
     Active Substance: RIVAROXABAN
     Indication: DEEP VEIN THROMBOSIS
     Route: 048
     Dates: end: 201502

REACTIONS (3)
  - Gastrointestinal haemorrhage [Recovering/Resolving]
  - Haematuria [Recovered/Resolved]
  - Colitis ischaemic [Recovering/Resolving]

NARRATIVE: CASE EVENT DATE: 20150208
